FAERS Safety Report 11757908 (Version 1)
Quarter: 2015Q4

REPORT INFORMATION
  Report Type: Spontaneous
  Country: JP (occurrence: JP)
  Receive Date: 20151120
  Receipt Date: 20151120
  Transmission Date: 20160304
  Serious: Yes (Hospitalization, Other)
  Sender: FDA-Public Use
  Company Number: JP-ASTELLAS-2015JP022866

PATIENT
  Age: 67 Year
  Sex: Female

DRUGS (10)
  1. BETANIS [Suspect]
     Active Substance: MIRABEGRON
     Indication: HYPERTONIC BLADDER
     Route: 048
     Dates: start: 20150220, end: 20150623
  2. VESICARE [Suspect]
     Active Substance: SOLIFENACIN SUCCINATE
     Indication: HYPERTONIC BLADDER
     Route: 048
     Dates: start: 20150421, end: 20150623
  3. LOXOPROFEN [Concomitant]
     Active Substance: LOXOPROFEN
     Indication: PROCEDURAL PAIN
  4. CRESTOR [Concomitant]
     Active Substance: ROSUVASTATIN CALCIUM
     Indication: DYSLIPIDAEMIA
     Route: 048
     Dates: start: 2003
  5. MAGLAX [Concomitant]
     Active Substance: MAGNESIUM OXIDE
     Indication: CONSTIPATION
     Route: 048
     Dates: start: 20150701
  6. CEFAZOLIN [Concomitant]
     Active Substance: CEFAZOLIN
     Indication: UTERINE CANCER
     Route: 041
     Dates: start: 20150626, end: 20150626
  7. FUROSEMIDE. [Concomitant]
     Active Substance: FUROSEMIDE
     Indication: URINE OUTPUT DECREASED
     Route: 041
     Dates: start: 20150629, end: 20150629
  8. LOXOPROFEN [Concomitant]
     Active Substance: LOXOPROFEN
     Indication: UTERINE CANCER
     Route: 048
     Dates: start: 20150630, end: 20150901
  9. REBAMIPIDE [Suspect]
     Active Substance: REBAMIPIDE
     Indication: GASTRITIS PROPHYLAXIS
     Route: 048
     Dates: start: 20150701, end: 20150901
  10. EPL CAP. [Concomitant]
     Indication: HEPATIC STEATOSIS
     Route: 048
     Dates: start: 2003

REACTIONS (3)
  - Urine output decreased [Recovered/Resolved]
  - Sepsis [Recovered/Resolved]
  - Constipation [Not Recovered/Not Resolved]

NARRATIVE: CASE EVENT DATE: 20150628
